FAERS Safety Report 9270136 (Version 1)
Quarter: 2013Q2

REPORT INFORMATION
  Report Type: Spontaneous
  Country: US (occurrence: US)
  Receive Date: 20130503
  Receipt Date: 20130503
  Transmission Date: 20140414
  Serious: No
  Sender: FDA-Public Use
  Company Number: US-009507513-1305USA001055

PATIENT
  Sex: Male

DRUGS (1)
  1. AZASITE [Suspect]
     Dosage: ONE DROP IN EACH EYE ONCE A DAY
     Route: 047

REACTIONS (2)
  - Inappropriate schedule of drug administration [Unknown]
  - No adverse event [Unknown]
